FAERS Safety Report 7774244-5 (Version None)
Quarter: 2011Q3

REPORT INFORMATION
  Report Type: 
  Country: None (occurrence: None)
  Receive Date: 20110921
  Receipt Date: 20110906
  Transmission Date: 20111222
  Serious: Yes (Other)
  Sender: FDA-Public Use
  Company Number: 2011MA013055

PATIENT
  Age: 39 Year
  Sex: Male

DRUGS (2)
  1. PAROXETINE HCL [Suspect]
     Indication: DEPRESSION
     Dosage: 40 MG;QD
  2. CITALOPRAM HYDROBROMIDE [Suspect]
     Indication: DEPRESSION
     Dosage: 20 MG;QD

REACTIONS (5)
  - DISEASE RECURRENCE [None]
  - ANTIPHOSPHOLIPID ANTIBODIES POSITIVE [None]
  - PULMONARY EMBOLISM [None]
  - CONDITION AGGRAVATED [None]
  - DEPRESSION [None]
